FAERS Safety Report 9808683 (Version 2)
Quarter: 2014Q1

REPORT INFORMATION
  Report Type: Report from Study
  Country: US (occurrence: US)
  Receive Date: 20140110
  Receipt Date: 20140220
  Transmission Date: 20141002
  Serious: Yes (Hospitalization)
  Sender: FDA-Public Use
  Company Number: US-BRISTOL-MYERS SQUIBB COMPANY-19985647

PATIENT
  Age: 56 Year
  Sex: Female
  Weight: 100.98 kg

DRUGS (6)
  1. BYDUREON [Suspect]
     Indication: TYPE 2 DIABETES MELLITUS
     Dosage: LAST DOSE OF STUDY DRUG IS?REPORTED TO BE ON 12/10/13,
     Route: 058
     Dates: start: 20130305, end: 20131210
  2. ESTROPIPATE [Concomitant]
  3. GEMFIBROZIL [Concomitant]
  4. LORATADINE [Concomitant]
  5. METOPROLOL TARTRATE [Concomitant]
  6. ZEGERID [Concomitant]
     Dosage: 1 CAPS

REACTIONS (1)
  - Pancreatitis acute [Recovering/Resolving]
